FAERS Safety Report 11228514 (Version 1)
Quarter: 2015Q2

REPORT INFORMATION
  Report Type: Spontaneous
  Country: US (occurrence: US)
  Receive Date: 20150630
  Receipt Date: 20150630
  Transmission Date: 20150821
  Serious: Yes (Other)
  Sender: FDA-Public Use
  Company Number: US-BAYER-2015-363804

PATIENT
  Age: 75 Year
  Sex: Male
  Weight: 77 kg

DRUGS (7)
  1. TRUBIOTICS [Suspect]
     Active Substance: BIFIDOBACTERIUM LONGUM\LACTOBACILLUS ACIDOPHILUS
     Indication: ABDOMINAL DISCOMFORT
     Dosage: 1 DF, QD
     Route: 048
     Dates: start: 201410, end: 20150621
  2. CARVEDILOL. [Concomitant]
     Active Substance: CARVEDILOL
  3. TUMS [CALCIUM CARBONATE,MAGNESIUM CARBONATE] [Concomitant]
  4. LOSARTAN [Concomitant]
     Active Substance: LOSARTAN
  5. BAYER LOW DOSE [Suspect]
     Active Substance: ASPIRIN
     Indication: ISCHAEMIC HEART DISEASE PROPHYLAXIS
     Dosage: UNK
     Dates: start: 1999
  6. ATORVASTATIN [Concomitant]
     Active Substance: ATORVASTATIN
  7. ALKA-SELTZER ORIGINAL [Suspect]
     Active Substance: ANHYDROUS CITRIC ACID\ASPIRIN\SODIUM BICARBONATE
     Dosage: 1 DF, UNK
     Dates: start: 20150622

REACTIONS (6)
  - Dyspepsia [Not Recovered/Not Resolved]
  - Abdominal pain upper [Not Recovered/Not Resolved]
  - Myocardial infarction [Recovered/Resolved]
  - Product use issue [Not Recovered/Not Resolved]
  - Gastrointestinal sounds abnormal [Not Recovered/Not Resolved]
  - Product use issue [Unknown]

NARRATIVE: CASE EVENT DATE: 2000
